FAERS Safety Report 8844772 (Version 1)
Quarter: 2012Q4

REPORT INFORMATION
  Report Type: 
  Country: US (occurrence: US)
  Receive Date: 20121017
  Receipt Date: 20121017
  Transmission Date: 20130627
  Serious: No
  Sender: FDA-Public Use
  Company Number: US-PFIZER INC-2012256818

PATIENT
  Sex: Female

DRUGS (2)
  1. LYRICA [Suspect]
     Indication: BACK PAIN
     Dosage: 50 mg, UNK
     Dates: start: 201210, end: 201210
  2. LIPITOR [Suspect]
     Dosage: UNK

REACTIONS (6)
  - Feeling abnormal [Recovering/Resolving]
  - Muscular weakness [Recovering/Resolving]
  - Dysstasia [Recovering/Resolving]
  - Gait disturbance [Recovering/Resolving]
  - Movement disorder [Recovering/Resolving]
  - Asthenia [Recovering/Resolving]
